FAERS Safety Report 5143404-4 (Version None)
Quarter: 2006Q4

REPORT INFORMATION
  Report Type: 
  Country: None (occurrence: None)
  Receive Date: 20061103
  Receipt Date: 20061024
  Transmission Date: 20070319
  Serious: Yes (Other)
  Sender: FDA-Public Use
  Company Number: 2006AC01963

PATIENT
  Sex: Female

DRUGS (1)
  1. NAROPIN [Suspect]

REACTIONS (2)
  - DRUG TOXICITY [None]
  - PARAPARESIS [None]
